FAERS Safety Report 7668117-6 (Version None)
Quarter: 2011Q3

REPORT INFORMATION
  Report Type: 
  Country: None (occurrence: None)
  Receive Date: 20110808
  Receipt Date: 20110726
  Transmission Date: 20111222
  Serious: Yes (Death)
  Sender: FDA-Public Use
  Company Number: RU-JNJFOC-20110800197

PATIENT
  Age: 14 Year
  Sex: Male

DRUGS (4)
  1. CYCLOPHOSPHAMIDE [Concomitant]
     Indication: SYSTEMIC LUPUS ERYTHEMATOSUS
     Route: 065
  2. INFLIXIMAB, RECOMBINANT [Suspect]
     Dosage: SECOND INFUSION
     Route: 042
  3. RITUXIMAB [Suspect]
     Indication: SYSTEMIC LUPUS ERYTHEMATOSUS
  4. INFLIXIMAB, RECOMBINANT [Suspect]
     Indication: HISTIOCYTOSIS HAEMATOPHAGIC
     Route: 042

REACTIONS (3)
  - PNEUMONIA [None]
  - ACUTE RESPIRATORY DISTRESS SYNDROME [None]
  - HISTIOCYTOSIS HAEMATOPHAGIC [None]
